FAERS Safety Report 20474213 (Version 1)
Quarter: 2022Q1

REPORT INFORMATION
  Report Type: Spontaneous
  Country: US (occurrence: None)
  Receive Date: 20220214
  Receipt Date: 20220214
  Transmission Date: 20220424
  Serious: Yes (unspecified)
  Sender: FDA-Public Use
  Company Number: None

PATIENT
  Age: 58 Year
  Sex: Male
  Weight: 65.25 kg

DRUGS (1)
  1. CIPROFLOXACIN [Suspect]
     Active Substance: CIPROFLOXACIN
     Indication: Pyrexia
     Dosage: OTHER FREQUENCY : JUST STARTED;?
     Route: 042

REACTIONS (2)
  - Infusion site rash [None]
  - Infusion site erythema [None]

NARRATIVE: CASE EVENT DATE: 20220203
